FAERS Safety Report 5387425-5 (Version None)
Quarter: 2007Q3

REPORT INFORMATION
  Report Type: 
  Country: None (occurrence: None)
  Receive Date: 20070716
  Receipt Date: 20070705
  Transmission Date: 20080115
  Serious: Yes (Hospitalization)
  Sender: FDA-Public Use
  Company Number: JP-AVENTIS-200713116EU

PATIENT
  Age: 70 Year
  Sex: Male

DRUGS (9)
  1. LANSOPRAZOLE [Suspect]
     Route: 048
     Dates: start: 20070511, end: 20070613
  2. LASIX [Suspect]
     Indication: CARDIAC FAILURE
     Route: 048
     Dates: start: 20070511, end: 20070613
  3. ARTIST [Suspect]
     Indication: CARDIAC FAILURE
     Route: 048
     Dates: start: 20070515, end: 20070613
  4. RENIVACE [Suspect]
     Indication: CARDIAC FAILURE
     Route: 048
     Dates: start: 20070506, end: 20070613
  5. AMLODIN [Suspect]
     Indication: CARDIAC FAILURE
     Route: 048
     Dates: start: 20070509, end: 20070613
  6. MAGMIT [Suspect]
     Indication: CONSTIPATION
     Route: 048
     Dates: start: 20070509, end: 20070613
  7. ALDACTONE [Suspect]
     Indication: CARDIAC FAILURE
     Route: 048
     Dates: start: 20070514, end: 20070613
  8. ASPIRIN [Concomitant]
     Indication: CARDIAC FAILURE
     Route: 048
     Dates: start: 20070428, end: 20070613
  9. TICLOPIDINE HCL [Concomitant]
     Indication: DRUG USE FOR UNKNOWN INDICATION
     Route: 048
     Dates: start: 20070428

REACTIONS (1)
  - INTERSTITIAL LUNG DISEASE [None]
